FAERS Safety Report 6618025-4 (Version None)
Quarter: 2010Q1

REPORT INFORMATION
  Report Type: 
  Country: None (occurrence: None)
  Receive Date: 20100308
  Receipt Date: 20100226
  Transmission Date: 20100710
  Serious: Yes (Hospitalization)
  Sender: FDA-Public Use
  Company Number: US-ABBOTT-10P-163-0626643-00

PATIENT
  Sex: Male

DRUGS (1)
  1. DEPAKOTE ER [Suspect]
     Indication: DRUG USE FOR UNKNOWN INDICATION
     Route: 048

REACTIONS (2)
  - DRUG LEVEL BELOW THERAPEUTIC [None]
  - GASTRECTOMY [None]
